FAERS Safety Report 6354180-1 (Version None)
Quarter: 2009Q3

REPORT INFORMATION
  Report Type: 
  Country: None (occurrence: None)
  Receive Date: 20090914
  Receipt Date: 20070620
  Transmission Date: 20100115
  Serious: Yes (Other)
  Sender: FDA-Public Use
  Company Number: US-ASTRAZENECA-2006UW26316

PATIENT
  Age: 61 Year
  Sex: Female
  Weight: 90.3 kg

DRUGS (12)
  1. SEROQUEL [Suspect]
     Indication: DEPRESSION
     Route: 048
     Dates: start: 20050502
  2. SEROQUEL [Suspect]
     Route: 048
     Dates: start: 20060101, end: 20060201
  3. TRAZODONE [Concomitant]
     Dosage: 50 MG - 200 MG
     Route: 048
     Dates: start: 19970602, end: 20050502
  4. ZOCOR [Concomitant]
     Dates: start: 19970602
  5. PROZAC [Concomitant]
     Route: 048
     Dates: start: 20050502
  6. ATIVAN [Concomitant]
     Route: 048
     Dates: start: 20050502
  7. NEURONTIN [Concomitant]
     Dates: start: 20071220
  8. LISINOPRIL [Concomitant]
     Dates: start: 20071220
  9. ZETIA [Concomitant]
     Dates: start: 20071220
  10. HYDROCHLOROTHIAZIDE [Concomitant]
     Dates: start: 20071220
  11. CARDIZEM CD [Concomitant]
     Dates: start: 20071220
  12. LOVENOX [Concomitant]
     Dates: start: 20071220

REACTIONS (3)
  - DIABETES MELLITUS [None]
  - NEUROPATHY PERIPHERAL [None]
  - WEIGHT INCREASED [None]
